FAERS Safety Report 5533480-9 (Version None)
Quarter: 2007Q4

REPORT INFORMATION
  Report Type: 
  Country: None (occurrence: None)
  Receive Date: 20071204
  Receipt Date: 20071123
  Transmission Date: 20080405
  Serious: Yes (Other)
  Sender: FDA-Public Use
  Company Number: US-PFIZER INC-2007098831

PATIENT
  Sex: Female
  Weight: 59 kg

DRUGS (4)
  1. GEODON [Suspect]
     Indication: BIPOLAR I DISORDER
     Route: 048
  2. LEXAPRO [Concomitant]
     Dosage: DAILY DOSE:10MG
  3. LAMICTAL [Concomitant]
     Dosage: DAILY DOSE:75MG
  4. TOPAMAX [Concomitant]
     Dosage: DAILY DOSE:100MG

REACTIONS (3)
  - EXTRAPYRAMIDAL DISORDER [None]
  - PRESSURE OF SPEECH [None]
  - PSYCHOMOTOR HYPERACTIVITY [None]
